FAERS Safety Report 10094388 (Version 2)
Quarter: 2014Q4

REPORT INFORMATION
  Report Type: Spontaneous
  Country: US (occurrence: US)
  Receive Date: 20140422
  Receipt Date: 20141110
  Transmission Date: 20150528
  Serious: Yes (Death, Hospitalization, Other)
  Sender: FDA-Public Use
  Company Number: US-JNJFOC-20140411670

PATIENT
  Sex: Female
  Weight: 86.18 kg

DRUGS (3)
  1. TYLENOL EXTRA STRENGTH [Suspect]
     Active Substance: ACETAMINOPHEN
     Indication: PAIN
     Route: 065
     Dates: start: 20120125, end: 20120131
  2. TYLENOL EXTRA STRENGTH [Suspect]
     Active Substance: ACETAMINOPHEN
     Indication: HEADACHE
     Route: 065
     Dates: start: 20120125, end: 20120131
  3. TYLENOL EXTRA STRENGTH [Suspect]
     Active Substance: ACETAMINOPHEN
     Indication: INFLUENZA LIKE ILLNESS
     Route: 065
     Dates: start: 20120125, end: 20120131

REACTIONS (5)
  - Acute hepatic failure [Fatal]
  - Exposure during pregnancy [Unknown]
  - Foetal death [Unknown]
  - Renal failure [Unknown]
  - Toxicity to various agents [Unknown]
